FAERS Safety Report 18944712 (Version 1)
Quarter: 2021Q1

REPORT INFORMATION
  Report Type: Spontaneous
  Country: US (occurrence: US)
  Receive Date: 20210226
  Receipt Date: 20210226
  Transmission Date: 20210420
  Serious: No
  Sender: FDA-Public Use
  Company Number: US-SA-2021SA062539

PATIENT
  Age: 63 Year
  Sex: Male

DRUGS (11)
  1. BUDESONIDE. [Concomitant]
     Active Substance: BUDESONIDE
  2. DUPIXENT [Suspect]
     Active Substance: DUPILUMAB
     Indication: ASTHMA
     Dosage: 300 MG, QOW
     Route: 058
     Dates: start: 20200803
  3. DULERA [Concomitant]
     Active Substance: FORMOTEROL FUMARATE DIHYDRATE\MOMETASONE FUROATE
  4. PREDNISONE. [Concomitant]
     Active Substance: PREDNISONE
  5. THEOPHYLLINE SODIUM ACETATE [Concomitant]
     Active Substance: THEOPHYLLINE SODIUM ACETATE
  6. SINGULAIR [Concomitant]
     Active Substance: MONTELUKAST SODIUM
  7. ESOMEPRA [Concomitant]
     Active Substance: ESOMEPRAZOLE
  8. ALBUTEROL [SALBUTAMOL] [Concomitant]
     Active Substance: ALBUTEROL
  9. FLONASE [Concomitant]
     Active Substance: FLUTICASONE PROPIONATE
  10. TAMSULOSIN [Concomitant]
     Active Substance: TAMSULOSIN
  11. SPIRIVA [Concomitant]
     Active Substance: TIOTROPIUM BROMIDE MONOHYDRATE

REACTIONS (2)
  - Respiration abnormal [Not Recovered/Not Resolved]
  - Product dose omission issue [Unknown]
